FAERS Safety Report 7775086-7 (Version None)
Quarter: 2011Q3

REPORT INFORMATION
  Report Type: 
  Country: None (occurrence: None)
  Receive Date: 20110923
  Receipt Date: 20110922
  Transmission Date: 20111222
  Serious: Yes (Hospitalization)
  Sender: FDA-Public Use
  Company Number: LU-ROCHE-804234

PATIENT
  Sex: Male

DRUGS (1)
  1. AVASTIN [Suspect]
     Indication: COLORECTAL CANCER
     Dosage: LAST DOSE PRIOR TO EVENT: 02 AUGUST 2011, FORM: INFUSION.
     Route: 042
     Dates: start: 20090914

REACTIONS (2)
  - HYPERCREATINAEMIA [None]
  - HYPONATRAEMIA [None]
